FAERS Safety Report 16217554 (Version 1)
Quarter: 2019Q2

REPORT INFORMATION
  Report Type: Spontaneous
  Country: US (occurrence: US)
  Receive Date: 20190419
  Receipt Date: 20190419
  Transmission Date: 20190711
  Serious: No
  Sender: FDA-Public Use
  Company Number: US-PFIZER INC-2019144966

PATIENT
  Age: 58 Year
  Sex: Female
  Weight: 102.95 kg

DRUGS (1)
  1. LYRICA [Suspect]
     Active Substance: PREGABALIN
     Indication: PAIN IN EXTREMITY
     Dosage: 75 MG, 3X/DAY
     Route: 048

REACTIONS (2)
  - Glycosylated haemoglobin increased [Unknown]
  - Axonal neuropathy [Unknown]
